FAERS Safety Report 7774172-5 (Version None)
Quarter: 2011Q3

REPORT INFORMATION
  Report Type: 
  Country: None (occurrence: None)
  Receive Date: 20110923
  Receipt Date: 20110914
  Transmission Date: 20111222
  Serious: Yes (Hospitalization, Other)
  Sender: FDA-Public Use
  Company Number: US-JNJFOC-20110712108

PATIENT
  Sex: Male

DRUGS (4)
  1. HALDOL [Suspect]
     Indication: PRODUCT USED FOR UNKNOWN INDICATION
     Route: 065
     Dates: start: 20110430
  2. HALDOL [Suspect]
     Route: 065
     Dates: start: 20110427, end: 20110427
  3. LORAZEPAM [Suspect]
     Dosage: 1 ML
     Route: 065
     Dates: start: 20110427
  4. LORAZEPAM [Suspect]
     Indication: PRODUCT USED FOR UNKNOWN INDICATION
     Route: 065
     Dates: start: 20110427

REACTIONS (2)
  - CONVULSION [None]
  - ADVERSE EVENT [None]
